FAERS Safety Report 10028097 (Version 1)
Quarter: 2014Q1

REPORT INFORMATION
  Report Type: Spontaneous
  Country: FR (occurrence: FR)
  Receive Date: 20140321
  Receipt Date: 20140321
  Transmission Date: 20141002
  Serious: Yes (Hospitalization, Other)
  Sender: FDA-Public Use
  Company Number: FR-PFIZER INC-2014077352

PATIENT
  Age: 65 Year
  Sex: Female

DRUGS (20)
  1. ONDANSETRON HCL [Suspect]
     Indication: PREMEDICATION
     Dosage: 4 CYCLES
     Route: 048
     Dates: start: 20130308
  2. ONDANSETRON HCL [Suspect]
     Dosage: 4 CYCLES
     Route: 048
     Dates: start: 20130402
  3. ONDANSETRON HCL [Suspect]
     Dosage: 4 CYCLES
     Route: 048
     Dates: start: 20130423
  4. ONDANSETRON HCL [Suspect]
     Dosage: 4 CYCLES
     Route: 048
     Dates: start: 20130521
  5. SOLU-MEDROL [Suspect]
     Indication: PREMEDICATION
     Dosage: 4 CYCLES
     Route: 042
     Dates: start: 20130308
  6. SOLU-MEDROL [Suspect]
     Dosage: 4 CYCLES
     Route: 042
     Dates: start: 20130402
  7. SOLU-MEDROL [Suspect]
     Dosage: 4 CYCLES
     Route: 042
     Dates: start: 20130423
  8. SOLU-MEDROL [Suspect]
     Dosage: 4 CYCLES
     Route: 042
     Dates: start: 20130521
  9. CARBOPLATIN [Suspect]
     Indication: OVARIAN CANCER
     Dosage: UNK
     Route: 042
     Dates: start: 20130308
  10. TAXOL [Suspect]
     Indication: OVARIAN CANCER
     Dosage: 4 CYCLES
     Route: 042
     Dates: start: 20130308
  11. TAXOL [Suspect]
     Dosage: 4 CYCLES
     Route: 042
     Dates: start: 20130402
  12. TAXOL [Suspect]
     Dosage: 4 CYCLES
     Route: 042
     Dates: start: 20130423
  13. TAXOL [Suspect]
     Dosage: 4 CYCLES
     Route: 042
     Dates: start: 20130521
  14. EMEND [Suspect]
     Indication: PREMEDICATION
     Dosage: 4 CYCLES
     Route: 048
     Dates: start: 20130308
  15. EMEND [Suspect]
     Dosage: 4 CYCLES
     Route: 048
     Dates: start: 20130402
  16. EMEND [Suspect]
     Dosage: 4 CYCLES
     Route: 048
     Dates: start: 20130423
  17. EMEND [Suspect]
     Dosage: 4 CYCLES
     Route: 048
     Dates: start: 20130523
  18. AVASTIN [Suspect]
     Indication: OVARIAN CANCER
     Dosage: TOTAL OF 3 CYCLES
     Route: 042
     Dates: start: 20130402
  19. AVASTIN [Suspect]
     Dosage: TOTAL OF 3 CYCLES
     Route: 042
     Dates: start: 20130423
  20. AVASTIN [Suspect]
     Dosage: TOTAL OF 3 CYCLES
     Route: 042
     Dates: start: 20130521

REACTIONS (6)
  - Dermatomyositis [Unknown]
  - Myalgia [Unknown]
  - Dysphagia [Unknown]
  - Blood creatine phosphokinase increased [Recovered/Resolved]
  - Lymphopenia [Unknown]
  - Aspartate aminotransferase increased [Unknown]
